FAERS Safety Report 4613162-8 (Version None)
Quarter: 2005Q1

REPORT INFORMATION
  Report Type: 
  Country: None (occurrence: None)
  Receive Date: 20050316
  Receipt Date: 20050304
  Transmission Date: 20050727
  Serious: Yes (Disabling)
  Sender: FDA-Public Use
  Company Number: MK200503-0116-1

PATIENT
  Age: 65 Year
  Sex: Male

DRUGS (2)
  1. ANAFRANIL [Suspect]
     Indication: ANXIETY
     Dosage: 25 MG, Q D
     Dates: start: 19950101
  2. ATACAND [Concomitant]

REACTIONS (8)
  - ANXIETY [None]
  - DEPRESSION [None]
  - DIZZINESS [None]
  - DRY MOUTH [None]
  - FATIGUE [None]
  - HYPERHIDROSIS [None]
  - NIGHTMARE [None]
  - URINARY TRACT DISORDER [None]
